FAERS Safety Report 24000718 (Version 1)
Quarter: 2024Q2

REPORT INFORMATION
  Report Type: Spontaneous
  Country: US (occurrence: US)
  Receive Date: 20240621
  Receipt Date: 20240621
  Transmission Date: 20240716
  Serious: No
  Sender: FDA-Public Use
  Company Number: US-IPSEN Group, Research and Development-2024-12093

PATIENT
  Age: 31 Year
  Sex: Female

DRUGS (6)
  1. DYSPORT [Suspect]
     Active Substance: ABOBOTULINUMTOXINA
     Indication: Skin wrinkling
     Dosage: 8 UNITS TO TOP OF FOREHEAD, 16 UNITS TO GLABELLA, 10 UNITS TO EACH CROWS FEET, 1 UNIT TO THE LASH LI
     Route: 065
     Dates: start: 20240605, end: 20240605
  2. DYSPORT [Suspect]
     Active Substance: ABOBOTULINUMTOXINA
     Indication: Skin wrinkling
  3. DYSPORT [Suspect]
     Active Substance: ABOBOTULINUMTOXINA
     Indication: Skin wrinkling
  4. DYSPORT [Suspect]
     Active Substance: ABOBOTULINUMTOXINA
     Indication: Off label use
  5. IUD NOS [Concomitant]
     Active Substance: COPPER OR LEVONORGESTREL
  6. RETIN A 8% [Concomitant]

REACTIONS (2)
  - Eyelid ptosis [Not Recovered/Not Resolved]
  - Off label use [Unknown]

NARRATIVE: CASE EVENT DATE: 20240605
